FAERS Safety Report 6626222-7 (Version None)
Quarter: 2010Q1

REPORT INFORMATION
  Report Type: 
  Country: None (occurrence: None)
  Receive Date: 20100309
  Receipt Date: 20100309
  Transmission Date: 20100710
  Serious: Yes (Hospitalization)
  Sender: FDA-Public Use
  Company Number: None

PATIENT
  Age: 62 Year
  Sex: Male
  Weight: 110 kg

DRUGS (2)
  1. FLUOROURACIL [Suspect]
     Dates: start: 20090729, end: 20090812
  2. CISPLATIN [Suspect]
     Dosage: 185 MG ONCE
     Dates: start: 20090729, end: 20090812

REACTIONS (4)
  - DIARRHOEA [None]
  - FATIGUE [None]
  - ORTHOSTATIC HYPOTENSION [None]
  - RENAL FAILURE ACUTE [None]
